FAERS Safety Report 5657347-0 (Version None)
Quarter: 2008Q1

REPORT INFORMATION
  Report Type: 
  Country: None (occurrence: None)
  Receive Date: 20080219
  Receipt Date: 20071126
  Transmission Date: 20080703
  Serious: No
  Sender: FDA-Public Use
  Company Number: WAES 0711USA04768

PATIENT
  Age: 84 Year
  Sex: Male
  Weight: 81.6475 kg

DRUGS (7)
  1. JANUVIA [Suspect]
     Indication: TYPE 2 DIABETES MELLITUS
     Dosage: 100 MG/DAILY/PO
     Route: 048
     Dates: start: 20070806, end: 20070828
  2. AVODART [Concomitant]
  3. GLUCOTROL [Concomitant]
  4. NORVASC [Concomitant]
  5. VYTORIN [Concomitant]
  6. DIGOXIN [Concomitant]
  7. ISOSORBIDE DINITRATE [Concomitant]

REACTIONS (3)
  - CELLULITIS [None]
  - MOUTH ULCERATION [None]
  - RASH [None]
